FAERS Safety Report 21188036 (Version 1)
Quarter: 2022Q3

REPORT INFORMATION
  Report Type: Spontaneous
  Country: GR (occurrence: GR)
  Receive Date: 20220809
  Receipt Date: 20220809
  Transmission Date: 20221027
  Serious: Yes (Other)
  Sender: FDA-Public Use
  Company Number: GR-SUN PHARMACEUTICAL INDUSTRIES LTD-2022R1-347649

PATIENT
  Age: 37 Year
  Sex: Female

DRUGS (1)
  1. METFORMIN [Suspect]
     Active Substance: METFORMIN HYDROCHLORIDE
     Indication: Insulin resistance
     Dosage: UNK
     Route: 065

REACTIONS (2)
  - Heavy menstrual bleeding [Recovering/Resolving]
  - Endometrial hyperplasia [Recovering/Resolving]
